FAERS Safety Report 19062476 (Version 1)
Quarter: 2021Q1

REPORT INFORMATION
  Report Type: Report from Study
  Country: PT (occurrence: PT)
  Receive Date: 20210326
  Receipt Date: 20210326
  Transmission Date: 20210420
  Serious: Yes (Hospitalization)
  Sender: FDA-Public Use
  Company Number: NVSC2021PT063645

PATIENT
  Sex: Male

DRUGS (2)
  1. ENTRESTO [Suspect]
     Active Substance: SACUBITRIL\VALSARTAN
     Dosage: UNK UNK, BID (2 TABLETS IN THE MORNING + 2 TABLETS IN THE AFTERNOON OF THE 49/52MG DOSE)
     Route: 048
     Dates: start: 20210215
  2. ENTRESTO [Suspect]
     Active Substance: SACUBITRIL\VALSARTAN
     Indication: CONGESTIVE CARDIOMYOPATHY
     Dosage: UNK (MINIMUM DOSE)
     Route: 048
     Dates: start: 20210204

REACTIONS (4)
  - Bacterial infection [Unknown]
  - Incorrect dose administered [Unknown]
  - Cardiac failure [Unknown]
  - Generalised oedema [Unknown]
